FAERS Safety Report 15645562 (Version 1)
Quarter: 2018Q4

REPORT INFORMATION
  Report Type: Spontaneous
  Country: US (occurrence: US)
  Receive Date: 20181121
  Receipt Date: 20181121
  Transmission Date: 20190205
  Serious: No
  Sender: FDA-Public Use
  Company Number: US-PFIZER INC-2018112298

PATIENT
  Age: 16 Year
  Sex: Male
  Weight: 52.61 kg

DRUGS (2)
  1. GENOTROPIN [Suspect]
     Active Substance: SOMATROPIN
     Dosage: 0.8 MG, 1X/DAY(0.8 MG, INJECTION, ONCE DAILY AT BED TIME)
     Route: 058
  2. GENOTROPIN [Suspect]
     Active Substance: SOMATROPIN
     Dosage: 0.6 MG, DAILY
     Dates: start: 201610

REACTIONS (7)
  - Wrong technique in product usage process [Unknown]
  - Product leakage [Unknown]
  - Insulin-like growth factor decreased [Unknown]
  - Bone density decreased [Unknown]
  - Product dose omission [Unknown]
  - Device issue [Unknown]
  - Blood 25-hydroxycholecalciferol decreased [Unknown]
